FAERS Safety Report 24579397 (Version 1)
Quarter: 2024Q4

REPORT INFORMATION
  Report Type: Spontaneous
  Country: JP (occurrence: JP)
  Receive Date: 20241105
  Receipt Date: 20241105
  Transmission Date: 20250114
  Serious: Yes (Other)
  Sender: ROCHE
  Company Number: JP-CHUGAI-2024038014

PATIENT
  Age: 16 Year
  Sex: Male

DRUGS (3)
  1. CELLCEPT [Suspect]
     Active Substance: MYCOPHENOLATE MOFETIL
     Indication: Prophylaxis against graft versus host disease
     Dosage: UNK
     Route: 050
  2. TACROLIMUS [Concomitant]
     Active Substance: TACROLIMUS
     Indication: Prophylaxis against graft versus host disease
     Dosage: UNK
     Route: 065
  3. CYCLOPHOSPHAMIDE [Concomitant]
     Active Substance: CYCLOPHOSPHAMIDE
     Indication: Prophylaxis against graft versus host disease
     Dosage: 80 MILLIGRAM/KILOGRAM
     Route: 065

REACTIONS (7)
  - Transplant failure [Unknown]
  - Pre-engraftment immune reaction [Unknown]
  - Haemophagocytic lymphohistiocytosis [Unknown]
  - Haemophagocytic lymphohistiocytosis [Unknown]
  - Cholangitis acute [Unknown]
  - Sepsis [Unknown]
  - Treatment noncompliance [Unknown]
